FAERS Safety Report 9060295 (Version 1)
Quarter: 2013Q1

REPORT INFORMATION
  Report Type: Spontaneous
  Country: US (occurrence: None)
  Receive Date: 20130207
  Receipt Date: 20130207
  Transmission Date: 20140127
  Serious: No
  Sender: FDA-Public Use
  Company Number: None

PATIENT
  Age: 67 Year
  Sex: Female
  Weight: 83.92 kg

DRUGS (1)
  1. BENAZEPRIL/HCTZ 20/12.5 MG MYLAN [Suspect]
     Indication: HYPERTENSION
     Dates: start: 201205, end: 20120815

REACTIONS (1)
  - Hypersensitivity [None]
